FAERS Safety Report 9696762 (Version 2)
Quarter: 2013Q4

REPORT INFORMATION
  Report Type: Spontaneous
  Country: US (occurrence: US)
  Receive Date: 20131119
  Receipt Date: 20131119
  Transmission Date: 20140711
  Serious: Yes (Other)
  Sender: FDA-Public Use
  Company Number: US-GILEAD-2007-0014607

PATIENT
  Age: 79 Year
  Sex: Female
  Weight: 53.52 kg

DRUGS (10)
  1. LETAIRIS [Suspect]
     Indication: PULMONARY ARTERIAL HYPERTENSION
     Route: 048
     Dates: start: 20071119
  2. OXYGEN [Concomitant]
     Indication: PULMONARY ARTERIAL HYPERTENSION
     Dosage: CONTINUOUS
     Route: 045
  3. GLUCOPHAGE [Concomitant]
     Indication: TYPE 1 DIABETES MELLITUS
     Route: 048
  4. DILTIAZEM HYDROCHLORIDE [Concomitant]
     Indication: ESSENTIAL HYPERTENSION
     Route: 048
  5. EVISTA [Concomitant]
     Indication: OSTEOPOROSIS
     Route: 048
  6. MEVACOR [Concomitant]
     Indication: HYPERCHOLESTEROLAEMIA
     Route: 048
  7. ASPIRIN [Concomitant]
     Indication: ANTICOAGULANT THERAPY
     Route: 048
  8. VIAGRA [Concomitant]
     Indication: PULMONARY ARTERIAL HYPERTENSION
     Route: 048
  9. TORSEMIDE [Concomitant]
     Indication: PULMONARY ARTERIAL HYPERTENSION
     Dosage: DAILY, BUT STOPS EVERY 3RD DAY
     Route: 048
  10. CALCIUM [Concomitant]
     Indication: MINERAL SUPPLEMENTATION
     Route: 048

REACTIONS (3)
  - Oedema peripheral [Recovered/Resolved]
  - Headache [Recovered/Resolved]
  - Nasal congestion [Recovered/Resolved]
